FAERS Safety Report 7773848-3 (Version None)
Quarter: 2011Q3

REPORT INFORMATION
  Report Type: 
  Country: None (occurrence: None)
  Receive Date: 20110923
  Receipt Date: 20110913
  Transmission Date: 20111222
  Serious: Yes (Other)
  Sender: FDA-Public Use
  Company Number: US-JNJFOC-20071205656

PATIENT
  Sex: Male
  Weight: 70.31 kg

DRUGS (34)
  1. TOPAMAX [Suspect]
     Route: 048
  2. ASPIRIN [Concomitant]
     Route: 048
     Dates: start: 20060101, end: 20090101
  3. TOPAMAX [Suspect]
     Route: 048
     Dates: start: 20080401
  4. TOPAMAX [Suspect]
     Route: 048
     Dates: start: 20070901, end: 20080101
  5. TOPAMAX [Suspect]
     Route: 048
  6. TOPAMAX [Suspect]
     Route: 048
     Dates: start: 20080401
  7. ASPIRIN [Concomitant]
  8. ZOFRAN [Concomitant]
     Indication: CYCLIC VOMITING SYNDROME
  9. LIPITOR [Concomitant]
     Indication: BLOOD CHOLESTEROL INCREASED
     Route: 048
     Dates: start: 20060901
  10. TOPAMAX [Suspect]
     Route: 048
     Dates: start: 20070901
  11. LEXAPRO [Concomitant]
  12. PLAVIX [Concomitant]
  13. VYTORIN [Concomitant]
  14. NICOTINE [Concomitant]
  15. NABUMETONE [Concomitant]
     Indication: ILL-DEFINED DISORDER
     Route: 048
  16. TOPAMAX [Suspect]
     Route: 048
     Dates: start: 20070901
  17. DEPAKOTE [Concomitant]
     Indication: BIPOLAR DISORDER
     Route: 048
     Dates: start: 20000101, end: 20080101
  18. INDERAL [Concomitant]
  19. PROPRANOLOL [Concomitant]
     Indication: HYPERTENSION
     Route: 048
     Dates: start: 20060901
  20. TOPAMAX [Suspect]
     Indication: ESSENTIAL TREMOR
     Route: 048
  21. FLONASE [Concomitant]
  22. SUPPLEMENTS [Concomitant]
     Indication: MEDICAL DIET
  23. TOPAMAX [Suspect]
     Indication: BIPOLAR DISORDER
     Route: 048
  24. TOPAMAX [Suspect]
     Route: 048
     Dates: start: 20070901, end: 20080101
  25. LITHIUM [Concomitant]
     Indication: BIPOLAR DISORDER
     Route: 048
     Dates: start: 19880101, end: 20090101
  26. ALLEGRA D 24 HOUR [Concomitant]
  27. SEROQUEL [Concomitant]
  28. SYNTHROID [Concomitant]
  29. ASPIRIN [Concomitant]
     Indication: MYOCARDIAL INFARCTION
     Route: 048
     Dates: start: 20090101
  30. ZANTAC [Concomitant]
  31. AMITRIPTYLENE [Concomitant]
     Indication: CYCLIC VOMITING SYNDROME
  32. FROVA [Concomitant]
     Indication: CYCLIC VOMITING SYNDROME
  33. XANAX [Concomitant]
     Indication: ANXIETY
     Route: 048
     Dates: end: 20100101
  34. SIMVASTATIN [Concomitant]
     Indication: BLOOD CHOLESTEROL INCREASED
     Route: 048
     Dates: start: 20090101

REACTIONS (13)
  - MENTAL STATUS CHANGES [None]
  - TREMOR [None]
  - LETHARGY [None]
  - FATIGUE [None]
  - DEPRESSION [None]
  - MOOD ALTERED [None]
  - TOOTH DISCOLOURATION [None]
  - LIVER FUNCTION TEST ABNORMAL [None]
  - SOMNOLENCE [None]
  - ANXIETY [None]
  - SUICIDAL IDEATION [None]
  - MANIA [None]
  - EYE PAIN [None]
